FAERS Safety Report 4345614-2 (Version None)
Quarter: 2004Q2

REPORT INFORMATION
  Report Type: 
  Country: None (occurrence: None)
  Receive Date: 20040421
  Receipt Date: 20040412
  Transmission Date: 20050107
  Serious: Yes (Other)
  Sender: FDA-Public Use
  Company Number: US-JNJFOC-20040403004

PATIENT
  Age: 50 Year
  Sex: Male
  Weight: 69.4003 kg

DRUGS (2)
  1. DURAGESIC [Suspect]
     Indication: PAIN
     Dosage: 75 UG/HR, 1 IN 72 HOUR, TRANSDERMAL
     Route: 062
     Dates: start: 20001101, end: 20040306
  2. ACTOSE (PIOGLITAZONE) [Concomitant]

REACTIONS (2)
  - HYPERSOMNIA [None]
  - SUICIDAL IDEATION [None]
